FAERS Safety Report 6770470-2 (Version None)
Quarter: 2010Q2

REPORT INFORMATION
  Report Type: 
  Country: None (occurrence: None)
  Receive Date: 20100615
  Receipt Date: 20100608
  Transmission Date: 20101027
  Serious: Yes (Hospitalization)
  Sender: FDA-Public Use
  Company Number: DK-PFIZER INC-2009283576

PATIENT
  Age: 81 Year
  Sex: Female

DRUGS (6)
  1. PEGVISOMANT [Suspect]
     Indication: ACROMEGALY
     Dosage: 10 MG, 1X/DAY
     Route: 058
     Dates: start: 20080108
  2. SANDOSTATIN [Concomitant]
     Dosage: 30 MG, MONTHLY
     Route: 030
  3. CIPRALEX [Concomitant]
     Dosage: 20 MG, 1X/DAY
  4. COZAAR [Concomitant]
     Dosage: UNK
  5. HYDROKORTISON [Concomitant]
     Dosage: 10 MG, 1X/DAY
  6. SERETIDE [Concomitant]
     Dosage: TWO DOSE, 2X/DAY
     Dates: end: 20090823

REACTIONS (2)
  - HAEMOPTYSIS [None]
  - PNEUMONIA [None]
